FAERS Safety Report 12277449 (Version 1)
Quarter: 2016Q2

REPORT INFORMATION
  Report Type: Spontaneous
  Country: None (occurrence: US)
  Receive Date: 20160418
  Receipt Date: 20160418
  Transmission Date: 20160815
  Serious: No
  Sender: FDA-Public Use
  Company Number: US-MEDAC PHARMA, INC.-1050654

PATIENT
  Age: 76 Year
  Sex: Female
  Weight: 65.91 kg

DRUGS (8)
  1. FLOVENT HFA [Concomitant]
     Active Substance: FLUTICASONE PROPIONATE
  2. RASUVO [Suspect]
     Active Substance: METHOTREXATE SODIUM
     Dates: start: 20160312
  3. ASPIRIN LOW DOSE [Concomitant]
     Active Substance: ASPIRIN
  4. PROAIR HFA [Concomitant]
     Active Substance: ALBUTEROL SULFATE
  5. LOVASTATIN. [Concomitant]
     Active Substance: LOVASTATIN
  6. ESTROGEN [Concomitant]
     Active Substance: ESTRONE\SUS SCROFA OVARY
  7. ALIGN PROBIOTIC SUPPLEMENT [Concomitant]
  8. FOLIC ACID. [Concomitant]
     Active Substance: FOLIC ACID

REACTIONS (6)
  - Administration site bruise [Recovering/Resolving]
  - Accidental exposure to product [Unknown]
  - Incorrect dosage administered [Unknown]
  - Device issue [Unknown]
  - Needle track marks [Recovering/Resolving]
  - Injection site pain [Unknown]

NARRATIVE: CASE EVENT DATE: 20160319
